FAERS Safety Report 17462161 (Version 1)
Quarter: 2020Q1

REPORT INFORMATION
  Report Type: Spontaneous
  Country: US (occurrence: US)
  Receive Date: 20200226
  Receipt Date: 20200226
  Transmission Date: 20200409
  Serious: No
  Sender: FDA-Public Use
  Company Number: US-NOVOPROD-682347

PATIENT
  Age: 46 Year
  Sex: Female

DRUGS (2)
  1. SAXENDA [Suspect]
     Active Substance: LIRAGLUTIDE
     Indication: WEIGHT DECREASED
     Dosage: 0.6 MG, QD
     Route: 058
     Dates: start: 20190820
  2. SAXENDA [Suspect]
     Active Substance: LIRAGLUTIDE
     Indication: POLYCYSTIC OVARIES

REACTIONS (4)
  - Chills [Recovered/Resolved]
  - Expired product administered [Unknown]
  - Diarrhoea [Recovered/Resolved]
  - Fatigue [Recovered/Resolved]

NARRATIVE: CASE EVENT DATE: 20190820
